FAERS Safety Report 14151147 (Version 2)
Quarter: 2017Q4

REPORT INFORMATION
  Report Type: Spontaneous
  Country: US (occurrence: US)
  Receive Date: 20171102
  Receipt Date: 20171107
  Transmission Date: 20180321
  Serious: Yes (Other)
  Sender: FDA-Public Use
  Company Number: US-ASTRAZENECA-2017SF09690

PATIENT
  Sex: Female

DRUGS (1)
  1. BRILINTA [Suspect]
     Active Substance: TICAGRELOR
     Indication: POST PROCEDURAL MYOCARDIAL INFARCTION
     Route: 048

REACTIONS (3)
  - Mouth injury [Unknown]
  - Haemorrhage [Unknown]
  - Fall [Unknown]
